FAERS Safety Report 14308765 (Version 1)
Quarter: 2017Q4

REPORT INFORMATION
  Report Type: Spontaneous
  Country: TR (occurrence: TR)
  Receive Date: 20171220
  Receipt Date: 20171220
  Transmission Date: 20180321
  Serious: Yes (Hospitalization, Congenital Anomaly, Other)
  Sender: FDA-Public Use
  Company Number: TR-MYLANLABS-2017M1077827

PATIENT

DRUGS (3)
  1. DESMONT [Suspect]
     Active Substance: DESLORATADINE\MONTELUKAST SODIUM
     Indication: ASTHMA
     Dosage: 10 MG
     Route: 064
  2. BECLOMETASONE;FORMOTEROL [Suspect]
     Active Substance: BECLOMETHASONE\FORMOTEROL
     Indication: ASTHMA
     Route: 064
  3. DESLORATADINE. [Suspect]
     Active Substance: DESLORATADINE
     Indication: ASTHMA
     Dosage: 5 MG
     Route: 064

REACTIONS (17)
  - Foetal exposure during pregnancy [Recovered/Resolved]
  - Adrenogenital syndrome [Unknown]
  - Maternal drugs affecting foetus [None]
  - Genitalia external ambiguous [None]
  - Abdominal distension [None]
  - Congenital nose malformation [Unknown]
  - Micrognathia [Unknown]
  - Blood potassium increased [None]
  - Dermatitis bullous [None]
  - Anomaly of external ear congenital [Unknown]
  - Congenital genital malformation [None]
  - Vulval disorder [None]
  - Blood sodium decreased [None]
  - Enlarged clitoris [None]
  - Respiratory tract haemorrhage neonatal [None]
  - Congenital skin disorder [Unknown]
  - Duodenal atresia [Unknown]
